FAERS Safety Report 10041640 (Version 2)
Quarter: 2014Q2

REPORT INFORMATION
  Report Type: Spontaneous
  Country: GR (occurrence: None)
  Receive Date: 20140325
  Receipt Date: 20140414
  Transmission Date: 20141212
  Serious: Yes (Disabling)
  Sender: FDA-Public Use
  Company Number: GR-20140002

PATIENT
  Age: 52 Year
  Sex: Female

DRUGS (1)
  1. GADOTERIC ACID [Suspect]
     Indication: NUCLEAR MAGNETIC RESONANCE IMAGING
     Dosage: 1 IN 1 D
     Route: 042
     Dates: start: 20130924, end: 20130924

REACTIONS (6)
  - Injection site extravasation [None]
  - Neuritis [None]
  - Injected limb mobility decreased [None]
  - Injection site pain [None]
  - Injection site oedema [None]
  - Injection site erythema [None]
